FAERS Safety Report 22265089 (Version 1)
Quarter: 2023Q2

REPORT INFORMATION
  Report Type: Spontaneous
  Country: PL (occurrence: PL)
  Receive Date: 20230428
  Receipt Date: 20230428
  Transmission Date: 20230721
  Serious: Yes (Hospitalization)
  Sender: FDA-Public Use
  Company Number: None

PATIENT
  Age: 66 Year
  Sex: Female
  Weight: 73 kg

DRUGS (1)
  1. CARBOPLATIN [Suspect]
     Active Substance: CARBOPLATIN
     Indication: Ovarian cancer
     Dosage: SECOND CYCLE OF CHEMOTHERAPY
     Route: 042
     Dates: start: 20191031

REACTIONS (4)
  - Hypersensitivity [Recovered/Resolved]
  - Abdominal pain [Recovered/Resolved]
  - Rash macular [Recovered/Resolved]
  - Vomiting [Recovered/Resolved]
